FAERS Safety Report 6123410-3 (Version None)
Quarter: 2009Q1

REPORT INFORMATION
  Report Type: 
  Country: None (occurrence: None)
  Receive Date: 20090318
  Receipt Date: 20090318
  Transmission Date: 20090719
  Serious: Yes (Other)
  Sender: FDA-Public Use
  Company Number: US-PFIZER INC-2008073713

PATIENT
  Sex: Female
  Weight: 47.2 kg

DRUGS (10)
  1. CHANTIX [Suspect]
     Indication: SMOKING CESSATION THERAPY
     Dates: start: 20080425
  2. ALPRAZOLAM [Concomitant]
  3. LEVOTHYROXINE [Concomitant]
  4. PROMETHAZINE [Concomitant]
  5. PROPOXYPHENE HCL AND ACETAMINOPHEN [Concomitant]
  6. VITAMIN D [Concomitant]
  7. CALCIUM [Concomitant]
  8. MAGNESIUM SULFATE [Concomitant]
  9. ZINC [Concomitant]
  10. L-LYSINE [Concomitant]

REACTIONS (29)
  - ADDISON'S DISEASE [None]
  - ADRENAL DISORDER [None]
  - AMNESIA [None]
  - ANGER [None]
  - CHEST DISCOMFORT [None]
  - CHEST PAIN [None]
  - COLON CANCER [None]
  - ENDOCRINE DISORDER [None]
  - FEELING COLD [None]
  - HAEMORRHAGE [None]
  - HEPATIC ENZYME INCREASED [None]
  - HYPERTENSION [None]
  - HYPOTENSION [None]
  - IMPAIRED DRIVING ABILITY [None]
  - IMPAIRED HEALING [None]
  - LOSS OF CONSCIOUSNESS [None]
  - MIGRAINE [None]
  - MULTI-ORGAN FAILURE [None]
  - MUSCLE SPASMS [None]
  - MYALGIA [None]
  - NERVOUSNESS [None]
  - NIGHT BLINDNESS [None]
  - PLEURISY [None]
  - PYREXIA [None]
  - ROAD TRAFFIC ACCIDENT [None]
  - SENSATION OF FOREIGN BODY [None]
  - SUICIDAL IDEATION [None]
  - TACHYCARDIA [None]
  - THINKING ABNORMAL [None]
